FAERS Safety Report 9006543 (Version 1)
Quarter: 2013Q1

REPORT INFORMATION
  Report Type: Report from Study
  Country: FR (occurrence: FR)
  Receive Date: 20130110
  Receipt Date: 20130110
  Transmission Date: 20140127
  Serious: Yes (Hospitalization, Other)
  Sender: FDA-Public Use
  Company Number: PHHY2013FR001805

PATIENT
  Age: 76 Year
  Sex: Female

DRUGS (8)
  1. ACLASTA [Suspect]
     Indication: OSTEOPOROSIS
     Dosage: UNK
     Route: 042
     Dates: start: 201106
  2. ACLASTA [Suspect]
     Dosage: UNK UKN, UNK
     Route: 042
     Dates: start: 201206
  3. TETRAZEPAM [Concomitant]
     Dosage: UNK
     Dates: start: 2011, end: 2011
  4. IXPRIM [Concomitant]
     Dosage: UNK
     Dates: start: 2011, end: 2011
  5. FIXICAL [Concomitant]
     Dosage: UKN
  6. TAHOR [Concomitant]
     Dosage: UNK
     Dates: start: 2012
  7. ASPEGIC                                 /SCH/ [Suspect]
     Dosage: UNK
     Dates: start: 2012
  8. PARIET [Concomitant]
     Dosage: UNK UKN, UNK
     Dates: start: 2012

REACTIONS (4)
  - Cerebrovascular accident [Unknown]
  - Aphasia [Unknown]
  - Ischaemic stroke [Recovered/Resolved]
  - Fall [Unknown]
